FAERS Safety Report 7250762-3 (Version None)
Quarter: 2011Q1

REPORT INFORMATION
  Report Type: 
  Country: None (occurrence: None)
  Receive Date: 20110128
  Receipt Date: 20110119
  Transmission Date: 20110831
  Serious: Yes (Hospitalization)
  Sender: FDA-Public Use
  Company Number: FR-EISAI INC-E3810-04409-SPO-FR

PATIENT
  Sex: Male

DRUGS (5)
  1. REMINYL LP [Suspect]
     Route: 048
  2. EQUANIL [Concomitant]
  3. KARDEGIC [Concomitant]
     Route: 048
  4. MEMANTINE HCL [Concomitant]
  5. PARIET (RABEPRAZOLE) [Suspect]
     Route: 048

REACTIONS (1)
  - GRAND MAL CONVULSION [None]
